FAERS Safety Report 6620641-0 (Version None)
Quarter: 2010Q1

REPORT INFORMATION
  Report Type: 
  Country: None (occurrence: None)
  Receive Date: 20100304
  Receipt Date: 20100224
  Transmission Date: 20100710
  Serious: Yes (Death)
  Sender: FDA-Public Use
  Company Number: 1000012206

PATIENT
  Age: 91 Year
  Sex: Female

DRUGS (8)
  1. DILTIAZEM [Suspect]
     Dosage: 10.8 GM, ONCE
  2. FUROSEMIDE [Concomitant]
  3. LEVOTHYROXINE SODIUM [Concomitant]
  4. DIGOXIN [Concomitant]
  5. ESOMEPRAZOLE [Concomitant]
  6. DOXEPIN HCL [Concomitant]
  7. TEMAZEPAM [Concomitant]
  8. WARFARIN SODIUM [Concomitant]

REACTIONS (15)
  - ACCIDENTAL OVERDOSE [None]
  - ASPIRATION [None]
  - ATRIOVENTRICULAR BLOCK COMPLETE [None]
  - BLOOD PRESSURE DECREASED [None]
  - CARDIAC ARREST [None]
  - CARDIAC DISORDER [None]
  - COLD SWEAT [None]
  - CYANOSIS [None]
  - HEART RATE DECREASED [None]
  - HYPERGLYCAEMIA [None]
  - HYPOKINESIA [None]
  - MENTAL STATUS CHANGES [None]
  - METABOLIC ACIDOSIS [None]
  - PULMONARY OEDEMA [None]
  - RESPIRATORY ARREST [None]
